FAERS Safety Report 10298947 (Version 2)
Quarter: 2014Q3

REPORT INFORMATION
  Report Type: Spontaneous
  Country: US (occurrence: US)
  Receive Date: 20140711
  Receipt Date: 20140812
  Transmission Date: 20150326
  Serious: No
  Sender: FDA-Public Use
  Company Number: US-JNJFOC-20140620556

PATIENT
  Sex: Male
  Weight: 90.72 kg

DRUGS (10)
  1. NUCYNTA [Concomitant]
     Active Substance: TAPENTADOL HYDROCHLORIDE
     Route: 065
  2. GABAPENTIN. [Concomitant]
     Active Substance: GABAPENTIN
     Indication: FIBROMYALGIA
     Route: 065
  3. DURAGESIC [Suspect]
     Active Substance: FENTANYL
     Indication: FIBROMYALGIA
     Route: 062
     Dates: end: 2014
  4. DURAGESIC [Suspect]
     Active Substance: FENTANYL
     Indication: FIBROMYALGIA
     Route: 062
     Dates: start: 2014
  5. FENTANYL TRANSDERMAL SYSTEM [Suspect]
     Active Substance: FENTANYL
     Indication: FIBROMYALGIA
     Route: 062
  6. VITAMIN D [Concomitant]
     Active Substance: CHOLECALCIFEROL
     Route: 065
  7. CYMBALTA [Concomitant]
     Active Substance: DULOXETINE HYDROCHLORIDE
     Indication: FIBROMYALGIA
     Route: 065
  8. FENTANYL TRANSDERMAL SYSTEM [Suspect]
     Active Substance: FENTANYL
     Indication: FIBROMYALGIA
     Route: 062
  9. VOLTAREN [Concomitant]
     Active Substance: DICLOFENAC SODIUM
     Indication: FIBROMYALGIA
     Route: 065
  10. OMEGA 3 [Concomitant]
     Active Substance: OMEGA-3 FATTY ACIDS
     Route: 065

REACTIONS (8)
  - Overdose [Unknown]
  - Product quality issue [Unknown]
  - Wrong technique in drug usage process [Not Recovered/Not Resolved]
  - Product quality issue [Not Recovered/Not Resolved]
  - Incorrect drug administration rate [Unknown]
  - Drug administration error [Not Recovered/Not Resolved]
  - Drug ineffective [Unknown]
  - Incorrect drug administration duration [Not Recovered/Not Resolved]

NARRATIVE: CASE EVENT DATE: 2014
